FAERS Safety Report 16948146 (Version 2)
Quarter: 2020Q2

REPORT INFORMATION
  Report Type: Spontaneous
  Country: US (occurrence: US)
  Receive Date: 20191022
  Receipt Date: 20200403
  Transmission Date: 20200713
  Serious: Yes (Other)
  Sender: FDA-Public Use
  Company Number: US-ROCHE-2295245

PATIENT
  Age: 75 Year
  Sex: Male

DRUGS (6)
  1. TRAMADOL HCL [Concomitant]
     Active Substance: TRAMADOL HYDROCHLORIDE
  2. VITAMIN D3 [Concomitant]
     Active Substance: CHOLECALCIFEROL
  3. ESBRIET [Suspect]
     Active Substance: PIRFENIDONE
     Indication: IDIOPATHIC PULMONARY FIBROSIS
     Dosage: 3 TABLET BY MOUTH 3 TIMES A DAY
     Route: 048
     Dates: start: 20190111, end: 20190329
  4. AMLODIPINE BESYLATE. [Concomitant]
     Active Substance: AMLODIPINE BESYLATE
  5. PREDNISONE. [Concomitant]
     Active Substance: PREDNISONE
  6. FINASTERIDE. [Concomitant]
     Active Substance: FINASTERIDE

REACTIONS (2)
  - Nausea [Recovered/Resolved]
  - Squamous cell carcinoma [Unknown]

NARRATIVE: CASE EVENT DATE: 20190301
